FAERS Safety Report 17368251 (Version 1)
Quarter: 2020Q1

REPORT INFORMATION
  Report Type: Spontaneous
  Country: US (occurrence: US)
  Receive Date: 20200204
  Receipt Date: 20200204
  Transmission Date: 20200409
  Serious: Yes (Hospitalization)
  Sender: FDA-Public Use
  Company Number: US-JNJFOC-20200140830

PATIENT
  Sex: Female
  Weight: 99.88 kg

DRUGS (2)
  1. STELARA [Suspect]
     Active Substance: USTEKINUMAB
     Indication: PSORIATIC ARTHROPATHY
     Route: 058
     Dates: start: 2011, end: 201801
  2. STELARA [Suspect]
     Active Substance: USTEKINUMAB
     Indication: PSORIASIS

REACTIONS (8)
  - Diverticulitis [Not Recovered/Not Resolved]
  - Off label use [Unknown]
  - Intestinal perforation [Unknown]
  - Psoriasis [Unknown]
  - Pulmonary embolism [Unknown]
  - Colonic abscess [Unknown]
  - Inappropriate schedule of product administration [Unknown]
  - Pancreatic abscess [Unknown]

NARRATIVE: CASE EVENT DATE: 2018
